FAERS Safety Report 9746452 (Version 1)
Quarter: 2013Q4

REPORT INFORMATION
  Report Type: Spontaneous
  Country: GB (occurrence: GB)
  Receive Date: 20131211
  Receipt Date: 20131211
  Transmission Date: 20140711
  Serious: Yes (Other)
  Sender: FDA-Public Use
  Company Number: PHHY2013GB141787

PATIENT
  Sex: Male

DRUGS (3)
  1. OLANZAPINE [Suspect]
     Dosage: UNK
  2. QUETIAPINE [Suspect]
     Dosage: UNK
  3. SERTRALINE [Suspect]
     Dosage: UNK
     Route: 065

REACTIONS (1)
  - Neuroleptic malignant syndrome [Recovered/Resolved]
